FAERS Safety Report 4636482-X (Version None)
Quarter: 2005Q2

REPORT INFORMATION
  Report Type: 
  Country: None (occurrence: None)
  Receive Date: 20050414
  Receipt Date: 20050414
  Transmission Date: 20051028
  Serious: No
  Sender: FDA-Public Use
  Company Number: None

PATIENT
  Sex: Female
  Weight: 68 kg

DRUGS (4)
  1. FLUOROURACIL [Suspect]
     Dosage: 175 MG /M2 IV QD X 38 DAYS
     Route: 042
     Dates: start: 20041115
  2. CISPLATIN [Suspect]
     Dosage: 30 MG/M2 IV Q WEEK X 6 WEEKS
     Route: 042
  3. INTERFERON [Suspect]
     Dosage: 3 MILLION UNITS SQ TTW
     Route: 058
  4. RADIATION [Suspect]
     Dosage: QD X 6 WEEKS

REACTIONS (3)
  - DIARRHOEA [None]
  - DRUG TOXICITY [None]
  - NAUSEA [None]
